FAERS Safety Report 9954868 (Version 2)
Quarter: 2014Q1

REPORT INFORMATION
  Report Type: Report from Study
  Country: PR (occurrence: PR)
  Receive Date: 20140304
  Receipt Date: 20140304
  Transmission Date: 20141002
  Serious: No
  Sender: FDA-Public Use
  Company Number: PR-ABBVIE-12P-131-0898609-00

PATIENT
  Age: 74 Year
  Sex: Female
  Weight: 58.11 kg

DRUGS (12)
  1. HUMIRA 40 MG/0.8 ML PEN [Suspect]
     Indication: RHEUMATOID ARTHRITIS
     Route: 058
     Dates: start: 2009, end: 201201
  2. HUMIRA 40 MG/0.8 ML PEN [Suspect]
     Route: 058
     Dates: start: 201203
  3. CLOTRIMAZOL [Concomitant]
     Indication: FUNGAL INFECTION
     Route: 048
  4. CARAFATE [Concomitant]
     Indication: ACIDOSIS
     Route: 048
  5. OMEPRAZOLE [Concomitant]
     Indication: ACIDOSIS
     Route: 048
  6. TRAMADOL [Concomitant]
     Indication: PAIN
     Route: 048
  7. PREDNISONE [Concomitant]
     Indication: RHEUMATOID ARTHRITIS
     Route: 048
  8. ATORVASTATIN [Concomitant]
     Indication: BLOOD CHOLESTEROL
     Route: 048
  9. SINGULAIR [Concomitant]
     Indication: HYPERSENSITIVITY
     Route: 048
  10. MULTIVITAMIN [Concomitant]
     Indication: VITAMIN SUPPLEMENTATION
     Route: 048
  11. VITAMIN D [Concomitant]
     Indication: VITAMIN SUPPLEMENTATION
     Route: 048
  12. FOLIC ACID [Concomitant]
     Indication: VITAMIN SUPPLEMENTATION
     Route: 048

REACTIONS (1)
  - Oral fungal infection [Recovered/Resolved]
